FAERS Safety Report 7149333-9 (Version None)
Quarter: 2010Q4

REPORT INFORMATION
  Report Type: 
  Country: None (occurrence: None)
  Receive Date: 20101209
  Receipt Date: 20101130
  Transmission Date: 20110411
  Serious: Yes (Hospitalization)
  Sender: FDA-Public Use
  Company Number: JP-ABBOTT-10P-087-0649109-00

PATIENT
  Sex: Male
  Weight: 13.8 kg

DRUGS (15)
  1. CLARITHROMYCIN [Suspect]
     Indication: OTITIS MEDIA ACUTE
     Route: 048
     Dates: start: 20100515, end: 20100517
  2. ALPINY [Suspect]
     Indication: OTITIS MEDIA ACUTE
     Route: 054
     Dates: start: 20100516, end: 20100516
  3. AMOXICILLIN AND CLAVULANATE POTASSIUM [Suspect]
     Indication: OTITIS MEDIA ACUTE
     Route: 048
     Dates: start: 20100510, end: 20100515
  4. AMOXICILLIN AND CLAVULANATE POTASSIUM [Suspect]
     Route: 048
     Dates: start: 20100517, end: 20100517
  5. TRANSAMIN [Suspect]
     Indication: OTITIS MEDIA ACUTE
     Route: 048
     Dates: start: 20100517, end: 20100517
  6. ASVERIN [Suspect]
     Indication: OTITIS MEDIA ACUTE
     Route: 048
     Dates: start: 20100517, end: 20100517
  7. SAWACILLIN [Suspect]
     Indication: PRODUCT USED FOR UNKNOWN INDICATION
  8. ZADITEN [Suspect]
     Indication: PRODUCT USED FOR UNKNOWN INDICATION
  9. BERACHIN [Suspect]
     Indication: OTITIS MEDIA ACUTE
     Route: 048
     Dates: start: 20100510, end: 20100515
  10. ACDEAM [Suspect]
     Indication: PRODUCT USED FOR UNKNOWN INDICATION
  11. MUCODYNE [Suspect]
     Indication: OTITIS MEDIA ACUTE
     Route: 048
     Dates: start: 20100510, end: 20100517
  12. ANTIBIOTICS-RESISTANT LACTIC ACID BACTERIAE [Suspect]
     Indication: OTITIS MEDIA ACUTE
     Route: 048
     Dates: start: 20100510, end: 20100517
  13. MIYA BM [Suspect]
     Indication: OTITIS MEDIA ACUTE
     Route: 048
     Dates: start: 20100517, end: 20100517
  14. KETOTIFEN FUMARATE [Suspect]
     Indication: OTITIS MEDIA ACUTE
     Route: 048
     Dates: start: 20100510, end: 20100515
  15. LYSOZYME HYDROCHLORIDE [Suspect]
     Indication: OTITIS MEDIA ACUTE
     Route: 048
     Dates: start: 20100510, end: 20100517

REACTIONS (1)
  - ERYTHEMA MULTIFORME [None]
